FAERS Safety Report 5145285-1 (Version None)
Quarter: 2006Q4

REPORT INFORMATION
  Report Type: 
  Country: None (occurrence: None)
  Receive Date: 20061107
  Receipt Date: 20061026
  Transmission Date: 20070319
  Serious: Yes (Other)
  Sender: FDA-Public Use
  Company Number: US-ELI_LILLY_AND_COMPANY-US200610004864

PATIENT
  Sex: Female

DRUGS (3)
  1. HUMALOG [Suspect]
     Dosage: UNK, UNKNOWN
  2. HUMALOG MIX 75/25 [Suspect]
     Dosage: 60 U, EACH MORNING
  3. HUMALOG MIX 75/25 [Suspect]
     Dosage: 35 U, EACH EVENING

REACTIONS (3)
  - RENAL DISORDER [None]
  - SPINAL OPERATION [None]
  - SURGERY [None]
